FAERS Safety Report 4378118-1 (Version None)
Quarter: 2004Q2

REPORT INFORMATION
  Report Type: 
  Country: None (occurrence: None)
  Receive Date: 20040609
  Receipt Date: 20040531
  Transmission Date: 20050107
  Serious: Yes (Hospitalization)
  Sender: FDA-Public Use
  Company Number: K200400814

PATIENT
  Age: 63 Year
  Sex: Male

DRUGS (6)
  1. ALTACE [Suspect]
     Indication: ESSENTIAL HYPERTENSION
     Dosage: ORAL
     Route: 048
     Dates: end: 20030407
  2. ALDACTONE [Suspect]
     Indication: ESSENTIAL HYPERTENSION
     Dosage: ORAL
     Route: 048
     Dates: end: 20030407
  3. CORDARONE [Suspect]
     Indication: ATRIAL FIBRILLATION
     Dosage: ORAL
     Route: 048
     Dates: start: 20020615, end: 20030407
  4. SOTALOL HCL [Suspect]
     Indication: ESSENTIAL HYPERTENSION
     Dosage: 1 MG, QD, ORAL
     Route: 048
     Dates: end: 20030615
  5. COZAAR [Suspect]
     Indication: ESSENTIAL HYPERTENSION
     Dosage: ORAL
     Route: 048
     Dates: start: 19970630, end: 20030604
  6. COZAAR [Suspect]
     Indication: ESSENTIAL HYPERTENSION
     Dosage: ORAL
     Route: 048
     Dates: start: 20040101

REACTIONS (2)
  - ECZEMA [None]
  - XEROSIS [None]
